FAERS Safety Report 8973171 (Version 1)
Quarter: 2012Q4

REPORT INFORMATION
  Report Type: 
  Country: FR (occurrence: FR)
  Receive Date: 20121218
  Receipt Date: 20121218
  Transmission Date: 20130627
  Serious: Yes (Hospitalization)
  Sender: FDA-Public Use
  Company Number: FR-TEVA-375500ISR

PATIENT
  Age: 60 Year
  Sex: Male

DRUGS (4)
  1. SALBUTAMOL [Suspect]
     Indication: ASTHMA
     Route: 055
     Dates: start: 201104, end: 20120823
  2. SYMBICORT TURBOHALER [Suspect]
     Indication: ASTHMA
     Route: 055
     Dates: start: 201104, end: 20120823
  3. SINGULAIR [Suspect]
     Route: 055
     Dates: start: 201204, end: 20120823
  4. POSSIBLE TEVA [Concomitant]
     Dosage: Long time treatment

REACTIONS (1)
  - Leukocytoclastic vasculitis [Unknown]
